FAERS Safety Report 8333792-X (Version None)
Quarter: 2012Q2

REPORT INFORMATION
  Report Type: 
  Country: None (occurrence: None)
  Receive Date: 20120503
  Receipt Date: 20120423
  Transmission Date: 20120825
  Serious: Yes (Other)
  Sender: FDA-Public Use
  Company Number: CA-ELI_LILLY_AND_COMPANY-CA201202000324

PATIENT
  Age: 72 Year
  Sex: Female

DRUGS (9)
  1. CALCIUM [Concomitant]
  2. FORTEO [Suspect]
     Indication: OSTEOPOROSIS
     Dosage: 20 UG, QD
     Route: 058
     Dates: start: 20110216
  3. VITAMIN C [Concomitant]
  4. NOVAMILOR [Concomitant]
  5. VITAMIN D [Concomitant]
  6. LIPITOR [Concomitant]
  7. MULTI-VITAMIN [Concomitant]
  8. ATENOLOL [Concomitant]
  9. ASPIRIN [Concomitant]

REACTIONS (1)
  - TENDON RUPTURE [None]
